FAERS Safety Report 6084310-0 (Version None)
Quarter: 2009Q1

REPORT INFORMATION
  Report Type: 
  Country: None (occurrence: None)
  Receive Date: 20090217
  Receipt Date: 20090205
  Transmission Date: 20090719
  Serious: Yes (Hospitalization)
  Sender: FDA-Public Use
  Company Number: 1-17548280

PATIENT
  Age: 49 Year
  Sex: Female

DRUGS (3)
  1. FENTANYL [Suspect]
     Indication: ANAESTHESIA
     Dosage: UNK UNK INTRAVENOUS
     Route: 042
     Dates: start: 20090126, end: 20090126
  2. PROPOFOL [Suspect]
     Indication: ANAESTHESIA
     Dosage: 200 MG UNK INTRAVENOUS
     Route: 042
     Dates: start: 20090126, end: 20090126
  3. ROCURONIUM BROMIDE [Suspect]
     Indication: ANAESTHESIA
     Dosage: 60 MG UNK INTRAVENOUS
     Route: 042
     Dates: start: 20090126, end: 20090126

REACTIONS (3)
  - ANAPHYLACTIC REACTION [None]
  - BLOOD PRESSURE DECREASED [None]
  - HEART RATE INCREASED [None]
